FAERS Safety Report 19071507 (Version 1)
Quarter: 2021Q1

REPORT INFORMATION
  Report Type: Spontaneous
  Country: FR (occurrence: FR)
  Receive Date: 20210330
  Receipt Date: 20210330
  Transmission Date: 20210420
  Serious: Yes (Hospitalization)
  Sender: FDA-Public Use
  Company Number: FR-JNJFOC-20210335636

PATIENT
  Age: 62 Year
  Sex: Male

DRUGS (4)
  1. TREVICTA [Suspect]
     Active Substance: PALIPERIDONE PALMITATE
     Indication: PRODUCT USED FOR UNKNOWN INDICATION
     Route: 030
     Dates: start: 2017
  2. TREVICTA [Suspect]
     Active Substance: PALIPERIDONE PALMITATE
     Route: 030
  3. TREVICTA [Suspect]
     Active Substance: PALIPERIDONE PALMITATE
     Route: 030
  4. LOXAPAC [LOXAPINE] [Concomitant]
     Active Substance: LOXAPINE

REACTIONS (5)
  - Medication error [Unknown]
  - Inappropriate schedule of product administration [Unknown]
  - Drug ineffective [Unknown]
  - Off label use [Unknown]
  - Hospitalisation [Recovering/Resolving]
